FAERS Safety Report 16493362 (Version 1)
Quarter: 2019Q2

REPORT INFORMATION
  Report Type: Report from Study
  Country: CN (occurrence: CN)
  Receive Date: 20190628
  Receipt Date: 20190628
  Transmission Date: 20190711
  Serious: Yes (Other)
  Sender: FDA-Public Use
  Company Number: CN-ROCHE-2339096

PATIENT

DRUGS (7)
  1. VINORELBINE [Suspect]
     Active Substance: VINORELBINE\VINORELBINE TARTRATE
     Indication: METASTASES TO LIVER
  2. CAPECITABINE. [Suspect]
     Active Substance: CAPECITABINE
     Indication: METASTASES TO LIVER
  3. CAPECITABINE. [Suspect]
     Active Substance: CAPECITABINE
     Indication: BREAST CANCER
     Dosage: DAY1 TO DAY14
     Route: 048
  4. DOCETAXEL. [Suspect]
     Active Substance: DOCETAXEL
     Indication: METASTASES TO LIVER
  5. DEXAMETHASONE. [Concomitant]
     Active Substance: DEXAMETHASONE
     Route: 065
  6. VINORELBINE [Suspect]
     Active Substance: VINORELBINE\VINORELBINE TARTRATE
     Indication: BREAST CANCER
     Dosage: DAY1,DAY8
     Route: 041
  7. DOCETAXEL. [Suspect]
     Active Substance: DOCETAXEL
     Indication: BREAST CANCER
     Route: 041

REACTIONS (5)
  - Renal impairment [Unknown]
  - Ileus paralytic [Recovered/Resolved]
  - Neutropenia [Unknown]
  - Liver injury [Unknown]
  - Bone marrow failure [Unknown]
